FAERS Safety Report 23654016 (Version 1)
Quarter: 2024Q1

REPORT INFORMATION
  Report Type: Spontaneous
  Country: IT (occurrence: IT)
  Receive Date: 20240320
  Receipt Date: 20240320
  Transmission Date: 20240409
  Serious: Yes (Hospitalization)
  Sender: FDA-Public Use
  Company Number: IT-ROCHE-3523639

PATIENT
  Age: 70 Year
  Sex: Female

DRUGS (2)
  1. MYCOPHENOLATE MOFETIL [Suspect]
     Active Substance: MYCOPHENOLATE MOFETIL
     Indication: Neuromyelitis optica spectrum disorder
     Dosage: UNK
     Route: 065
  2. SATRALIZUMAB [Suspect]
     Active Substance: SATRALIZUMAB
     Indication: Neuromyelitis optica spectrum disorder
     Dosage: UNK
     Route: 065
     Dates: start: 202306

REACTIONS (2)
  - Breast cancer [Unknown]
  - Off label use [Unknown]

NARRATIVE: CASE EVENT DATE: 20240201
